FAERS Safety Report 5677769-1 (Version None)
Quarter: 2008Q1

REPORT INFORMATION
  Report Type: 
  Country: None (occurrence: None)
  Receive Date: 20080318
  Receipt Date: 20080306
  Transmission Date: 20080703
  Serious: Yes (Other)
  Sender: FDA-Public Use
  Company Number: 2008-01724

PATIENT
  Age: 42 Year
  Sex: Male

DRUGS (1)
  1. FIORICET [Suspect]
     Indication: DRUG USE FOR UNKNOWN INDICATION
     Dosage: 1G DOSES(X12); 6DOSE ENTERALLY, 6, INTRAVENOUS
     Route: 042

REACTIONS (1)
  - ACUTE HEPATIC FAILURE [None]
